FAERS Safety Report 19316052 (Version 3)
Quarter: 2021Q3

REPORT INFORMATION
  Report Type: Report from Study
  Country: CO (occurrence: CO)
  Receive Date: 20210527
  Receipt Date: 20210811
  Transmission Date: 20211014
  Serious: Yes (Other)
  Sender: FDA-Public Use
  Company Number: NVSC2021CO113270

PATIENT
  Sex: Female
  Weight: 70 kg

DRUGS (2)
  1. COSENTYX [Suspect]
     Active Substance: SECUKINUMAB
     Indication: PSORIASIS
     Dosage: 300 MG, QMO
     Route: 058
     Dates: start: 20190101
  2. VENASTAT [Concomitant]
     Active Substance: HORSE CHESTNUT
     Indication: VARICOSE VEIN
     Dosage: UNK UNK, QD
     Route: 048

REACTIONS (15)
  - Dyspnoea [Unknown]
  - Condition aggravated [Unknown]
  - Blood cholesterol increased [Unknown]
  - Skin lesion [Unknown]
  - Pigmentation disorder [Unknown]
  - Vocal cord cyst [Unknown]
  - Hypertension [Unknown]
  - Depressed mood [Unknown]
  - Throat tightness [Unknown]
  - Varicose ulceration [Unknown]
  - Unevaluable event [Unknown]
  - Investigation abnormal [Unknown]
  - Malaise [Unknown]
  - Asthenia [Unknown]
  - Choking [Unknown]

NARRATIVE: CASE EVENT DATE: 2020
